FAERS Safety Report 17925008 (Version 1)
Quarter: 2020Q2

REPORT INFORMATION
  Report Type: Spontaneous
  Country: NL (occurrence: NL)
  Receive Date: 20200622
  Receipt Date: 20200622
  Transmission Date: 20200714
  Serious: Yes (Hospitalization)
  Sender: FDA-Public Use
  Company Number: NL-ALLERGAN-2023665US

PATIENT
  Sex: Male
  Weight: 78.5 kg

DRUGS (8)
  1. NORTRILEN [Concomitant]
     Active Substance: NORTRIPTYLINE
     Dosage: TABLET, 50 MG (MILLIGRAM)
     Route: 065
  2. PANTOPRAZOL [Concomitant]
     Active Substance: PANTOPRAZOLE SODIUM
     Dosage: MAAGSAPRESISTENTE TABLET, 20 MG (MILLIGRAM)
     Route: 065
  3. QUETIAPINE. [Concomitant]
     Active Substance: QUETIAPINE
     Dosage: FILM-COATED TABLET, 100 MG (MILLIGRAM)
     Route: 065
  4. ZOPICLON [Concomitant]
     Active Substance: ZOPICLONE
     Dosage: 2 TABLETS OF 7,5 MG
     Route: 065
  5. OXAZEPAM. [Concomitant]
     Active Substance: OXAZEPAM
     Dosage: TABLET, 10 MG (MILLIGRAM)
     Route: 065
  6. ORAMORPH [Concomitant]
     Active Substance: MORPHINE SULFATE
     Dosage: 2 X 10 MG AMPOULES TWICE A DAY
     Route: 065
  7. CITALOPRAM HYDROBROMIDE - BP [Suspect]
     Active Substance: CITALOPRAM HYDROBROMIDE
     Indication: DEPRESSION
     Dosage: 60 MG, QD
     Route: 065
     Dates: start: 2009
  8. CREON [Concomitant]
     Active Substance: PANCRELIPASE AMYLASE\PANCRELIPASE LIPASE\PANCRELIPASE PROTEASE
     Dosage: MAAGSAPRESISTENTE CAPSULE, 25000/40000/1600 FE
     Route: 065

REACTIONS (2)
  - Overdose [Unknown]
  - Pancreatitis acute [Not Recovered/Not Resolved]
